FAERS Safety Report 14226582 (Version 3)
Quarter: 2018Q1

REPORT INFORMATION
  Report Type: Report from Study
  Country: US (occurrence: US)
  Receive Date: 20171127
  Receipt Date: 20180111
  Transmission Date: 20180508
  Serious: Yes (Hospitalization)
  Sender: FDA-Public Use
  Company Number: US-SA-2017SA230441

PATIENT
  Age: 53 Year
  Sex: Male

DRUGS (1)
  1. LEMTRADA [Suspect]
     Active Substance: ALEMTUZUMAB
     Indication: MULTIPLE SCLEROSIS
     Route: 041
     Dates: start: 20171113, end: 20171114

REACTIONS (8)
  - Blood pressure decreased [Recovered/Resolved]
  - Feeling cold [Recovered/Resolved]
  - Chronic obstructive pulmonary disease [Unknown]
  - Hypoaesthesia [Recovered/Resolved]
  - Crying [Unknown]
  - Feeling abnormal [Unknown]
  - Dysarthria [Recovered/Resolved]
  - Musculoskeletal disorder [Recovered/Resolved]

NARRATIVE: CASE EVENT DATE: 201711
